FAERS Safety Report 26092326 (Version 1)
Quarter: 2025Q4

REPORT INFORMATION
  Report Type: Spontaneous
  Country: US (occurrence: US)
  Receive Date: 20251126
  Receipt Date: 20251126
  Transmission Date: 20260117
  Serious: Yes (Hospitalization, Other)
  Sender: CB FLEET
  Company Number: US-PRESTIGE-202511-US-003717

PATIENT
  Age: 56 Year
  Sex: Male

DRUGS (2)
  1. MINERAL OIL [Suspect]
     Active Substance: MINERAL OIL
     Indication: Constipation
     Dosage: DAILY FOR THE PAST 6MONTHS
     Route: 048
  2. OXYCODONE [Concomitant]
     Active Substance: OXYCODONE

REACTIONS (8)
  - Pneumonia lipoid [Recovered/Resolved]
  - Chest pain [Recovered/Resolved]
  - Dyspnoea [Recovered/Resolved]
  - Fatigue [Recovered/Resolved]
  - Back pain [Recovered/Resolved]
  - Night sweats [Recovered/Resolved]
  - Weight decreased [Recovered/Resolved]
  - Incorrect product administration duration [None]
